FAERS Safety Report 7968834-4 (Version None)
Quarter: 2011Q4

REPORT INFORMATION
  Report Type: 
  Country: None (occurrence: None)
  Receive Date: 20111122
  Receipt Date: 20110721
  Transmission Date: 20120403
  Serious: Yes (Other)
  Sender: FDA-Public Use
  Company Number: PHHY2011US66351

PATIENT
  Sex: Female

DRUGS (7)
  1. VITAMIN D (ERGOCALCIFEROL) CAPSULE [Concomitant]
  2. BUSPIRONE (BUSPIRONE) TABLET, 5 MG [Concomitant]
  3. GILENYA [Suspect]
     Dosage: 0.5 MG, QD
  4. TYLENOL (PARACETAMOL) TABLET, 500 MG [Concomitant]
  5. XANAX [Concomitant]
  6. BACLOFEN (BACLOFEN) TABLET, 10 MG [Concomitant]
  7. OXYBUTYNIN (OXYBUTYNIN) TABLET, 5 MG [Concomitant]

REACTIONS (1)
  - BLOOD PRESSURE INCREASED [None]
